FAERS Safety Report 7550313-X (Version None)
Quarter: 2011Q2

REPORT INFORMATION
  Report Type: 
  Country: None (occurrence: None)
  Receive Date: 20110615
  Receipt Date: 20101217
  Transmission Date: 20111010
  Serious: Yes (Other)
  Sender: FDA-Public Use
  Company Number: CA-ASTRAZENECA-2010SE54124

PATIENT
  Age: 79 Year
  Sex: Male

DRUGS (2)
  1. IRESSA [Suspect]
     Route: 048
     Dates: end: 20100910
  2. IRESSA [Suspect]
     Route: 048
     Dates: start: 20101018

REACTIONS (1)
  - LIVER FUNCTION TEST ABNORMAL [None]
